FAERS Safety Report 12607367 (Version 8)
Quarter: 2017Q2

REPORT INFORMATION
  Report Type: Spontaneous
  Country: US (occurrence: US)
  Receive Date: 20160729
  Receipt Date: 20170526
  Transmission Date: 20170830
  Serious: No
  Sender: FDA-Public Use
  Company Number: US-PFIZER INC-2016361678

PATIENT
  Age: 74 Year
  Sex: Female
  Weight: 92.52 kg

DRUGS (11)
  1. IBRANCE [Suspect]
     Active Substance: PALBOCICLIB
     Indication: BREAST CANCER METASTATIC
     Dosage: 125 MG, DAILY
     Route: 048
     Dates: start: 20160526
  2. IBRANCE [Suspect]
     Active Substance: PALBOCICLIB
     Dosage: UNK
     Dates: start: 20170310
  3. IBRANCE [Suspect]
     Active Substance: PALBOCICLIB
     Dosage: 125 MG, CYCLIC(DAY 1-21 Q 28 DAYS)
     Route: 048
     Dates: start: 20160603
  4. IBRANCE [Suspect]
     Active Substance: PALBOCICLIB
     Dosage: 125 MG CYCLIC (DAYS 1-21 EVERY 28 DAYS)
     Route: 048
     Dates: start: 20160603
  5. IBRANCE [Suspect]
     Active Substance: PALBOCICLIB
     Dosage: UNK
     Dates: start: 20170505
  6. IBRANCE [Suspect]
     Active Substance: PALBOCICLIB
     Dosage: 125 MG CYCLIC (DAYS 1-21 EVERY 28 DAYS)
     Route: 048
     Dates: start: 20160603
  7. IBRANCE [Suspect]
     Active Substance: PALBOCICLIB
     Dosage: 125 MG CYCLIC (DAYS 1-21 EVERY 28 DAYS)
     Route: 048
     Dates: start: 20160603
  8. DIOVAN [Concomitant]
     Active Substance: VALSARTAN
     Indication: HYPERTENSION
     Dosage: UNK, DAILY [VALSARTAN: 320, HYDROCHLOROTHIAZIDE: 12.5]
     Route: 048
     Dates: start: 20160419
  9. IBRANCE [Suspect]
     Active Substance: PALBOCICLIB
     Dosage: 125 MG CYCLIC (DAYS 1-21 Q 28 DAYS)
     Route: 048
     Dates: start: 20160603
  10. IBRANCE [Suspect]
     Active Substance: PALBOCICLIB
     Dosage: 125 MG, DAILY
     Route: 048
     Dates: start: 20170204
  11. LETROZOLE. [Concomitant]
     Active Substance: LETROZOLE
     Indication: BREAST CANCER METASTATIC
     Dosage: 1 DF, DAILY
     Route: 048
     Dates: start: 20170202

REACTIONS (11)
  - White blood cell count abnormal [Unknown]
  - Arthralgia [Recovering/Resolving]
  - Dry skin [Unknown]
  - Musculoskeletal pain [Not Recovered/Not Resolved]
  - Alopecia [Not Recovered/Not Resolved]
  - Fatigue [Not Recovered/Not Resolved]
  - Chills [Recovered/Resolved]
  - Contusion [Recovered/Resolved]
  - White blood cell count decreased [Unknown]
  - Fall [Unknown]
  - Haemoglobin decreased [Recovered/Resolved]

NARRATIVE: CASE EVENT DATE: 201612
